FAERS Safety Report 8798078 (Version 3)
Quarter: 2013Q1

REPORT INFORMATION
  Report Type: Report from Study
  Country: US (occurrence: US)
  Receive Date: 20120920
  Receipt Date: 20130117
  Transmission Date: 20140127
  Serious: Yes (Hospitalization)
  Sender: FDA-Public Use
  Company Number: US-US-EMD SERONO, INC.-7160838

PATIENT
  Sex: Female

DRUGS (3)
  1. REBIF [Suspect]
     Indication: MULTIPLE SCLEROSIS
     Route: 058
     Dates: start: 20070628
  2. REBIF [Suspect]
     Route: 058
  3. TYLENOL PM [Concomitant]
     Indication: PREMEDICATION

REACTIONS (3)
  - Teratoma benign [Recovered/Resolved]
  - Kidney infection [Recovering/Resolving]
  - Uterine leiomyoma [Not Recovered/Not Resolved]
